FAERS Safety Report 7642249-0 (Version None)
Quarter: 2011Q3

REPORT INFORMATION
  Report Type: 
  Country: None (occurrence: None)
  Receive Date: 20110728
  Receipt Date: 20110722
  Transmission Date: 20111222
  Serious: Yes (Death, Hospitalization, Other)
  Sender: FDA-Public Use
  Company Number: PHHY2011US65987

PATIENT
  Sex: Female

DRUGS (25)
  1. MYFORTIC [Suspect]
     Indication: LUNG TRANSPLANT
     Dosage: 360 MG, BID
  2. ALBUTEROL SULFATE AUTOHALER [Concomitant]
     Dosage: UNK
  3. ACYCLOVIR [Concomitant]
     Dosage: UNK
  4. LORAZEPAM [Concomitant]
     Dosage: UNK
  5. VITAMIN TAB [Concomitant]
     Dosage: UNK
  6. ACETAMINOPHEN [Concomitant]
     Dosage: UNK
  7. EPOGEN [Concomitant]
     Dosage: UNK
  8. NOVOLOG [Concomitant]
     Dosage: UNK
  9. LEVOTHYROXINE SODIUM [Concomitant]
     Dosage: UNK
  10. MAGNESIUM OXIDE [Concomitant]
     Dosage: UNK
  11. PROTONIX [Concomitant]
     Dosage: UNK
  12. CLONAZEPAM [Concomitant]
     Dosage: UNK
  13. IPRATROPIUM BROMIDE [Concomitant]
     Dosage: UNK
  14. BUSPIRONE HCL [Concomitant]
     Dosage: UNK
  15. FENTANYL [Concomitant]
     Dosage: UNK
  16. PROGRAF [Suspect]
     Indication: LUNG TRANSPLANT
     Dosage: 2 MG IN MORNING / 2.5 MG IN EVENING
     Dates: start: 20080803
  17. HYDROMORPHONE HCL [Concomitant]
     Dosage: UNK
  18. INSULIN GLARGINE [Concomitant]
     Dosage: UNK
  19. PREDNISONE [Concomitant]
     Dosage: UNK
  20. VENLAFAXINE [Concomitant]
     Dosage: UNK
  21. MIDAZOLAM HCL [Concomitant]
     Dosage: UNK
  22. TRIMETHOPRIM [Concomitant]
     Dosage: UNK
  23. SIROLIMUS [Concomitant]
     Dosage: UNK
     Dates: start: 20100401
  24. AZITHROMYCIN [Concomitant]
     Dosage: UNK
  25. CYTOMEL [Concomitant]
     Dosage: UNK

REACTIONS (18)
  - PNEUMOTHORAX [None]
  - OBLITERATIVE BRONCHIOLITIS [None]
  - BLOOD CREATININE INCREASED [None]
  - DECREASED ACTIVITY [None]
  - RENAL FAILURE [None]
  - LYMPHOCYTIC INFILTRATION [None]
  - HEADACHE [None]
  - CARDIO-RESPIRATORY ARREST [None]
  - DECREASED APPETITE [None]
  - RESPIRATORY FAILURE [None]
  - VIRAEMIA [None]
  - NAUSEA [None]
  - BLOOD GLUCOSE DECREASED [None]
  - DYSPNOEA [None]
  - CYTOMEGALOVIRUS INFECTION [None]
  - FORCED EXPIRATORY VOLUME DECREASED [None]
  - PYREXIA [None]
  - NEUTROPENIA [None]
